FAERS Safety Report 23678183 (Version 1)
Quarter: 2024Q1

REPORT INFORMATION
  Report Type: Spontaneous
  Country: JP (occurrence: JP)
  Receive Date: 20240327
  Receipt Date: 20240327
  Transmission Date: 20240409
  Serious: Yes (Other)
  Sender: FDA-Public Use
  Company Number: JP-PFIZER INC-202400073009

PATIENT

DRUGS (6)
  1. METHYLPREDNISOLONE SODIUM SUCCINATE [Suspect]
     Active Substance: METHYLPREDNISOLONE SODIUM SUCCINATE
     Indication: Immune-mediated myositis
     Dosage: 500 MG, 1X/DAY
     Route: 064
  2. PREDNISOLONE [Suspect]
     Active Substance: PREDNISOLONE
     Indication: Immune-mediated myositis
     Dosage: 50 MG, 1X/DAY ((1?MG/KG/DAY) ON DAY 34)
     Route: 064
  3. PREDNISOLONE [Suspect]
     Active Substance: PREDNISOLONE
     Dosage: 12.5 MG, 1X/DAY
     Route: 064
  4. PREDNISOLONE [Suspect]
     Active Substance: PREDNISOLONE
     Dosage: 15 MG, 1X/DAY, TAPPERED
     Route: 064
  5. TACROLIMUS [Suspect]
     Active Substance: TACROLIMUS
     Indication: Immune-mediated myositis
     Dosage: 2 MG
     Route: 064
  6. TACROLIMUS [Suspect]
     Active Substance: TACROLIMUS
     Dosage: 3 MG
     Route: 064

REACTIONS (2)
  - Premature baby [Unknown]
  - Maternal exposure during pregnancy [Unknown]
